FAERS Safety Report 7410266-1 (Version None)
Quarter: 2011Q2

REPORT INFORMATION
  Report Type: 
  Country: None (occurrence: None)
  Receive Date: 20110412
  Receipt Date: 20110321
  Transmission Date: 20111010
  Serious: Yes (Hospitalization, Other)
  Sender: FDA-Public Use
  Company Number: US-BAYER-2010-002226

PATIENT
  Sex: Female
  Weight: 99.773 kg

DRUGS (7)
  1. NEXIUM [Concomitant]
     Indication: GASTROOESOPHAGEAL REFLUX DISEASE
     Dosage: 40 MG, UNK
     Dates: start: 20090401
  2. CEPHALEXIN [Concomitant]
     Dosage: 500 MG, UNK
  3. OCELLA [Suspect]
     Dosage: UNK
     Dates: start: 20090401, end: 20091101
  4. YASMIN [Suspect]
     Indication: PRODUCT USED FOR UNKNOWN INDICATION
  5. NAPROXEN [Concomitant]
     Dosage: 500 MG, UNK
     Dates: start: 20090801
  6. SUMATRIPTAN [Concomitant]
     Dosage: 100 MG, UNK
     Dates: start: 20090701
  7. YAZ [Suspect]
     Indication: PRODUCT USED FOR UNKNOWN INDICATION

REACTIONS (2)
  - CHOLECYSTITIS [None]
  - CHOLELITHIASIS [None]
